FAERS Safety Report 11472749 (Version 2)
Quarter: 2015Q3

REPORT INFORMATION
  Report Type: Spontaneous
  Country: US (occurrence: US)
  Receive Date: 20150908
  Receipt Date: 20150922
  Transmission Date: 20151125
  Serious: Yes (Other)
  Sender: FDA-Public Use
  Company Number: ALCN2015US005569

PATIENT
  Age: 68 Year
  Sex: Female
  Weight: 74.83 kg

DRUGS (6)
  1. DUREZOL [Suspect]
     Active Substance: DIFLUPREDNATE
     Indication: POSTOPERATIVE CARE
  2. BESIVANCE//BESIFLOXACIN [Concomitant]
     Indication: POSTOPERATIVE CARE
  3. BESIVANCE//BESIFLOXACIN [Concomitant]
     Indication: PREOPERATIVE CARE
     Route: 047
  4. PROLENSA [Concomitant]
     Active Substance: BROMFENAC SODIUM
     Indication: PREOPERATIVE CARE
     Route: 047
  5. DUREZOL [Suspect]
     Active Substance: DIFLUPREDNATE
     Indication: PREOPERATIVE CARE
     Dosage: UNK
     Route: 047
     Dates: start: 201506
  6. PROLENSA [Concomitant]
     Active Substance: BROMFENAC SODIUM
     Indication: POSTOPERATIVE CARE

REACTIONS (10)
  - Cystoid macular oedema [Unknown]
  - Eye pain [Not Recovered/Not Resolved]
  - Visual field defect [Not Recovered/Not Resolved]
  - Lacrimation increased [Not Recovered/Not Resolved]
  - Ocular discomfort [Not Recovered/Not Resolved]
  - Vision blurred [Not Recovered/Not Resolved]
  - Halo vision [Not Recovered/Not Resolved]
  - Eye infection [Unknown]
  - Ocular hyperaemia [Unknown]
  - Visual acuity reduced [Not Recovered/Not Resolved]

NARRATIVE: CASE EVENT DATE: 201508
